FAERS Safety Report 7214418-5 (Version None)
Quarter: 2011Q1

REPORT INFORMATION
  Report Type: 
  Country: None (occurrence: None)
  Receive Date: 20110107
  Receipt Date: 20101230
  Transmission Date: 20110831
  Serious: Yes (Hospitalization)
  Sender: FDA-Public Use
  Company Number: PHHY2010US72264

PATIENT
  Sex: Male

DRUGS (1)
  1. EXJADE [Suspect]
     Dosage: 1250 MG, QD
     Route: 048
     Dates: start: 20100924

REACTIONS (6)
  - OEDEMA PERIPHERAL [None]
  - PNEUMONIA [None]
  - MALAISE [None]
  - PYREXIA [None]
  - EYELID OEDEMA [None]
  - VISION BLURRED [None]
